FAERS Safety Report 11029284 (Version 2)
Quarter: 2017Q4

REPORT INFORMATION
  Report Type: Spontaneous
  Country: JP (occurrence: JP)
  Receive Date: 20150415
  Receipt Date: 20171123
  Transmission Date: 20180320
  Serious: Yes (Death, Other)
  Sender: FDA-Public Use
  Company Number: JP-BRISTOL-MYERS SQUIBB COMPANY-BMS-2015-019965

PATIENT
  Age: 65 Year
  Sex: Male
  Weight: 68 kg

DRUGS (1)
  1. CETUXIMAB. [Suspect]
     Active Substance: CETUXIMAB
     Indication: NASAL SINUS CANCER
     Dosage: 400 MG/M2, QWK
     Route: 041
     Dates: start: 20130529, end: 20140409

REACTIONS (3)
  - Dyspnoea [Fatal]
  - Interstitial lung disease [Unknown]
  - Respiratory distress [Fatal]

NARRATIVE: CASE EVENT DATE: 20140421
